FAERS Safety Report 21341224 (Version 2)
Quarter: 2023Q4

REPORT INFORMATION
  Report Type: Spontaneous
  Country: IL (occurrence: IL)
  Receive Date: 20220916
  Receipt Date: 20231229
  Transmission Date: 20240109
  Serious: Yes (Other)
  Sender: FDA-Public Use
  Company Number: IL-ALKEM LABORATORIES LIMITED-CN-ALKEM-2022-09691

PATIENT
  Age: 18 Year
  Sex: Female

DRUGS (1)
  1. COLCHICINE [Suspect]
     Active Substance: COLCHICINE
     Indication: Product used for unknown indication
     Dosage: 18 MILLIGRAM, ONCE (0.4 MILLIGRAM/KILOGRAM)
     Route: 065

REACTIONS (15)
  - Acute respiratory failure [Recovering/Resolving]
  - Liver injury [Recovering/Resolving]
  - Respiratory distress [Unknown]
  - Suicide attempt [Recovering/Resolving]
  - Rhabdomyolysis [Recovering/Resolving]
  - Pancytopenia [Unknown]
  - Leukopenia [Recovering/Resolving]
  - Thrombocytopenia [Recovering/Resolving]
  - Overdose [Unknown]
  - Acidosis [Recovering/Resolving]
  - Coagulopathy [Recovering/Resolving]
  - Hypertriglyceridaemia [Unknown]
  - Vomiting [Unknown]
  - Diarrhoea [Unknown]
  - Anaemia [Recovering/Resolving]
